FAERS Safety Report 6291588-7 (Version None)
Quarter: 2009Q3

REPORT INFORMATION
  Report Type: 
  Country: None (occurrence: None)
  Receive Date: 20090730
  Receipt Date: 20090718
  Transmission Date: 20100115
  Serious: Yes (Hospitalization)
  Sender: FDA-Public Use
  Company Number: US-MYLANLABS-2009S1012858

PATIENT
  Age: 30 Year
  Sex: Male

DRUGS (4)
  1. GEMFIBROZIL [Suspect]
     Indication: HYPERLIPIDAEMIA
  2. LISINOPRIL [Concomitant]
  3. ASPIRIN [Concomitant]
  4. INSULIN [Concomitant]

REACTIONS (2)
  - RENAL FAILURE ACUTE [None]
  - RHABDOMYOLYSIS [None]
